FAERS Safety Report 5390160-0 (Version None)
Quarter: 2007Q3

REPORT INFORMATION
  Report Type: 
  Country: None (occurrence: None)
  Receive Date: 20070716
  Receipt Date: 20070716
  Transmission Date: 20080115
  Serious: Yes (Life-Threatening, Hospitalization, Disabling, Other)
  Sender: FDA-Public Use
  Company Number: None

PATIENT
  Age: 69 Year
  Sex: Female
  Weight: 71.6683 kg

DRUGS (2)
  1. CIPROFLOXACIN HCL [Suspect]
     Indication: BRONCHITIS
     Dates: start: 20021110, end: 20021120
  2. AVELOX [Suspect]
     Indication: PNEUMONIA
     Dosage: ONE TABLET ONE PER DAY PO
     Route: 048
     Dates: start: 20070626, end: 20070628

REACTIONS (26)
  - ABDOMINAL DISCOMFORT [None]
  - ASTHMA [None]
  - BASEDOW'S DISEASE [None]
  - BLOOD BILIRUBIN INCREASED [None]
  - BLOOD PHOSPHORUS INCREASED [None]
  - CARDIAC VALVE DISEASE [None]
  - CARDIOMYOPATHY [None]
  - CHEST PAIN [None]
  - CHROMATURIA [None]
  - CONSTIPATION [None]
  - DIARRHOEA [None]
  - ELECTROLYTE IMBALANCE [None]
  - EXERCISE TOLERANCE DECREASED [None]
  - FAECES PALE [None]
  - FATIGUE [None]
  - FLUOROSIS [None]
  - HEART RATE INCREASED [None]
  - HEART RATE IRREGULAR [None]
  - HYPERSENSITIVITY [None]
  - MUSCLE DISORDER [None]
  - MUSCULAR WEAKNESS [None]
  - NAUSEA [None]
  - OEDEMA PERIPHERAL [None]
  - PYREXIA [None]
  - TREMOR [None]
  - VOMITING [None]
